FAERS Safety Report 18733752 (Version 1)
Quarter: 2021Q1

REPORT INFORMATION
  Report Type: Spontaneous
  Country: CA (occurrence: CA)
  Receive Date: 20210113
  Receipt Date: 20210113
  Transmission Date: 20210419
  Serious: Yes (Disabling, Other)
  Sender: FDA-Public Use
  Company Number: CA-CELLTRION INC.-2021CA000094

PATIENT

DRUGS (2)
  1. PROPRANOLOL [Concomitant]
     Active Substance: PROPRANOLOL HYDROCHLORIDE
     Dosage: UNK
  2. INFLECTRA [Suspect]
     Active Substance: INFLIXIMAB-DYYB
     Indication: CROHN^S DISEASE
     Dosage: 400 MG, 1 EVERY 6 WEEKS
     Route: 042

REACTIONS (22)
  - Pain [Unknown]
  - Pruritus [Unknown]
  - Ulcer [Unknown]
  - Chillblains [Unknown]
  - Dizziness [Unknown]
  - Lethargy [Unknown]
  - Alopecia [Unknown]
  - Hot flush [Unknown]
  - Off label use [Unknown]
  - Migraine [Unknown]
  - Mouth swelling [Unknown]
  - Cough [Unknown]
  - Palpitations [Unknown]
  - Swelling [Unknown]
  - Throat tightness [Unknown]
  - Muscular weakness [Unknown]
  - Nausea [Unknown]
  - Burning sensation [Unknown]
  - Decreased appetite [Unknown]
  - Infusion related reaction [Unknown]
  - Vomiting [Unknown]
  - Temperature intolerance [Unknown]
